FAERS Safety Report 13461666 (Version 9)
Quarter: 2017Q4

REPORT INFORMATION
  Report Type: Report from Study
  Country: CA (occurrence: CA)
  Receive Date: 20170420
  Receipt Date: 20171017
  Transmission Date: 20180320
  Serious: Yes (Hospitalization, Other)
  Sender: FDA-Public Use
  Company Number: CA-GLAXOSMITHKLINE-CA2016GSK086404

PATIENT
  Sex: Female

DRUGS (8)
  1. NUCALA [Suspect]
     Active Substance: MEPOLIZUMAB
     Dosage: 100 UNK, UNK
     Dates: start: 20170802
  2. NUCALA [Suspect]
     Active Substance: MEPOLIZUMAB
     Dosage: 100 MG, Z
     Route: 042
  3. FLUTICASONE PROPIONATE+SALMETEROL XINAFOATE [Suspect]
     Active Substance: FLUTICASONE PROPIONATE\SALMETEROL XINAFOATE
     Indication: PRODUCT USED FOR UNKNOWN INDICATION
     Dosage: UNK
  4. NUCALA [Suspect]
     Active Substance: MEPOLIZUMAB
     Dosage: 100 MG, Z
     Route: 042
  5. NUCALA [Suspect]
     Active Substance: MEPOLIZUMAB
     Dosage: 100 MG, Z
     Route: 042
  6. VENTOLIN [Suspect]
     Active Substance: ALBUTEROL SULFATE
     Indication: PRODUCT USED FOR UNKNOWN INDICATION
  7. NUCALA [Suspect]
     Active Substance: MEPOLIZUMAB
     Indication: ASTHMA
     Dosage: 100 MG, Z
     Route: 042
     Dates: start: 20160908
  8. NUCALA [Suspect]
     Active Substance: MEPOLIZUMAB
     Dosage: 100 MG, Z
     Route: 042

REACTIONS (26)
  - Vision blurred [Not Recovered/Not Resolved]
  - Somnolence [Unknown]
  - Influenza [Unknown]
  - Cough [Unknown]
  - Asthma [Unknown]
  - Disease recurrence [Unknown]
  - Nausea [Unknown]
  - Abdominal pain upper [Unknown]
  - Pyrexia [Recovering/Resolving]
  - Abdominal pain [Unknown]
  - Vomiting [Unknown]
  - Viral infection [Recovering/Resolving]
  - Anaemia [Not Recovered/Not Resolved]
  - Hypertension [Recovering/Resolving]
  - Nasopharyngitis [Unknown]
  - Insomnia [Unknown]
  - Neoplasm malignant [Unknown]
  - Decreased appetite [Unknown]
  - Weight decreased [Unknown]
  - Malaise [Unknown]
  - Chills [Unknown]
  - Drug ineffective [Unknown]
  - Surgery [Unknown]
  - Asthenia [Unknown]
  - Dizziness [Unknown]
  - Diarrhoea [Unknown]

NARRATIVE: CASE EVENT DATE: 2011
